FAERS Safety Report 6262412-3 (Version None)
Quarter: 2009Q3

REPORT INFORMATION
  Report Type: 
  Country: None (occurrence: None)
  Receive Date: 20090709
  Receipt Date: 20090625
  Transmission Date: 20100115
  Serious: Yes (Hospitalization, Other)
  Sender: FDA-Public Use
  Company Number: US-ROCHE-621573

PATIENT
  Age: 58 Year
  Sex: Female

DRUGS (7)
  1. PEGASYS [Suspect]
     Indication: HEPATITIS C
     Dosage: FORM: PRE FILLED SYRINGE, ROUTE REPORTED AS INJECTION
     Route: 065
     Dates: start: 20070101
  2. PEGASYS [Suspect]
     Route: 065
     Dates: start: 20081201
  3. PEGASYS [Suspect]
     Dosage: FORM: PRE FILLED SYRINGE, ROUTE REPORTED AS INJECTION
     Route: 065
     Dates: start: 20090201, end: 20090501
  4. RIBAVIRIN [Suspect]
     Indication: HEPATITIS C
     Route: 065
     Dates: start: 20070101
  5. RIBAVIRIN [Suspect]
     Dosage: LOWERED DOSE
     Route: 065
     Dates: start: 20081201
  6. RIBAVIRIN [Suspect]
     Route: 065
     Dates: start: 20090201, end: 20090301
  7. METOPROLOL [Concomitant]

REACTIONS (14)
  - ABDOMINAL PAIN [None]
  - ANXIETY [None]
  - BLOOD PRESSURE INCREASED [None]
  - CHEST PAIN [None]
  - DEPRESSION [None]
  - DYSPNOEA [None]
  - FEELING ABNORMAL [None]
  - FLIGHT OF IDEAS [None]
  - FUNGAL INFECTION [None]
  - HALLUCINATION [None]
  - LUNG INFECTION [None]
  - LYMPHOMA [None]
  - RASH PRURITIC [None]
  - RED BLOOD CELL COUNT DECREASED [None]
